FAERS Safety Report 9523756 (Version 3)
Quarter: 2014Q1

REPORT INFORMATION
  Report Type: Report from Study
  Country: BR (occurrence: BR)
  Receive Date: 20130915
  Receipt Date: 20140203
  Transmission Date: 20141002
  Serious: Yes (Hospitalization, Other)
  Sender: FDA-Public Use
  Company Number: PHHY2013BR098508

PATIENT
  Age: 36 Year
  Sex: Female

DRUGS (7)
  1. XOLAIR [Suspect]
     Dosage: UNK
  2. XOLAIR [Suspect]
     Dosage: 225 MG, BIW
     Dates: start: 201203
  3. XOLAIR [Suspect]
     Dosage: UNK
     Dates: start: 201307
  4. FORASEQ [Suspect]
     Dosage: 2 DF, Q12H, EVERY 12 HOURS
  5. FLUOXETINE [Suspect]
     Dosage: 40 MG, DAY
  6. OMEPRAZOLE [Suspect]
     Dosage: 20 MG, DAY
  7. BECLOMETHASONE [Suspect]
     Dosage: 400 UG, Q12H

REACTIONS (12)
  - Asthma [Unknown]
  - Dyspnoea [Recovering/Resolving]
  - Cough [Unknown]
  - Wheezing [Recovering/Resolving]
  - Obstructive airways disorder [Unknown]
  - Nodule [Unknown]
  - Encephalitis viral [Unknown]
  - Confusional state [Unknown]
  - Rhinitis allergic [Recovering/Resolving]
  - Middle insomnia [Recovering/Resolving]
  - Snoring [Unknown]
  - Weight increased [Unknown]
